FAERS Safety Report 19736195 (Version 1)
Quarter: 2021Q3

REPORT INFORMATION
  Report Type: Spontaneous
  Country: CN (occurrence: CN)
  Receive Date: 20210824
  Receipt Date: 20210824
  Transmission Date: 20211014
  Serious: Yes (Hospitalization)
  Sender: FDA-Public Use
  Company Number: CN-SA-2021SA275633

PATIENT
  Age: 49 Year
  Sex: Female
  Weight: 44.8 kg

DRUGS (6)
  1. DOCETAXEL. [Suspect]
     Active Substance: DOCETAXEL
     Indication: BREAST CANCER FEMALE
     Dosage: 111 MG, QD
     Route: 041
     Dates: start: 20210804, end: 20210804
  2. SODIUM CHLORIDE. [Concomitant]
     Active Substance: SODIUM CHLORIDE
     Indication: ELECTROLYTE SUBSTITUTION THERAPY
     Dosage: 250 ML, QD
     Route: 041
     Dates: start: 20210804, end: 20210804
  3. GLUCOSE [Concomitant]
     Active Substance: DEXTROSE
     Indication: ELECTROLYTE SUBSTITUTION THERAPY
     Dosage: 250 ML, QD
     Route: 041
     Dates: start: 20210804, end: 20210804
  4. CARBOPLATIN. [Suspect]
     Active Substance: CARBOPLATIN
     Indication: BREAST CANCER FEMALE
     Dosage: 0.45 G, QD
     Route: 041
     Dates: start: 20210804, end: 20210804
  5. PERTUZUMAB. [Suspect]
     Active Substance: PERTUZUMAB
     Indication: BREAST CANCER FEMALE
     Dosage: 420 MG, QD
     Route: 041
     Dates: start: 20210804, end: 20210804
  6. TRASTUZUMAB. [Suspect]
     Active Substance: TRASTUZUMAB
     Indication: BREAST CANCER FEMALE
     Dosage: 0.268 G, QD
     Route: 041
     Dates: start: 20210804, end: 20210804

REACTIONS (4)
  - Pyrexia [Recovering/Resolving]
  - White blood cell count decreased [Recovering/Resolving]
  - Neutrophil count decreased [Recovering/Resolving]
  - Diarrhoea [Recovering/Resolving]

NARRATIVE: CASE EVENT DATE: 20210810
